FAERS Safety Report 10753214 (Version 1)
Quarter: 2015Q1

REPORT INFORMATION
  Report Type: Report from Study
  Country: DE (occurrence: DE)
  Receive Date: 20150130
  Receipt Date: 20150130
  Transmission Date: 20150721
  Serious: Yes (Hospitalization)
  Sender: FDA-Public Use
  Company Number: DE-ABBVIE-14P-062-1219492-00

PATIENT
  Age: 54 Year
  Sex: Male

DRUGS (1)
  1. DUODOPA [Suspect]
     Active Substance: CARBIDOPA\LEVODOPA
     Indication: PARKINSON^S DISEASE
     Dosage: MD: 7.5 ML CRD: 7.8 ML/H CRN: 5.8 ML/H ED: 3.5 ML
     Route: 050
     Dates: start: 20061209

REACTIONS (7)
  - Abasia [Recovering/Resolving]
  - Monoparesis [Recovering/Resolving]
  - Pain in extremity [Recovering/Resolving]
  - Chronic inflammatory demyelinating polyradiculoneuropathy [Unknown]
  - Weight decreased [Unknown]
  - Sleep disorder [Unknown]
  - Device dislocation [Recovered/Resolved]

NARRATIVE: CASE EVENT DATE: 201208
